FAERS Safety Report 10191642 (Version 2)
Quarter: 2014Q4

REPORT INFORMATION
  Report Type: Report from Study
  Country: AU (occurrence: AU)
  Receive Date: 20140523
  Receipt Date: 20141201
  Transmission Date: 20150528
  Serious: Yes (Other)
  Sender: FDA-Public Use
  Company Number: AU-SA-2014SA062794

PATIENT
  Age: 78 Year
  Sex: Female

DRUGS (5)
  1. CRESTOR [Concomitant]
     Active Substance: ROSUVASTATIN CALCIUM
  2. LANTUS [Suspect]
     Active Substance: INSULIN GLARGINE
     Indication: PRODUCT USED FOR UNKNOWN INDICATION
     Dosage: AT NIGHT DOSE:26 UNIT(S)
     Route: 065
     Dates: start: 20130421
  3. QUINAPRIL [Concomitant]
     Active Substance: QUINAPRIL\QUINAPRIL HYDROCHLORIDE
  4. LANTUS [Suspect]
     Active Substance: INSULIN GLARGINE
     Indication: PRODUCT USED FOR UNKNOWN INDICATION
     Dosage: DOSE:34 UNIT(S)
     Route: 065
     Dates: start: 20130205
  5. DIAMICRON [Concomitant]
     Active Substance: GLICLAZIDE

REACTIONS (5)
  - Blood glucose decreased [Recovering/Resolving]
  - Gastrointestinal carcinoma [Recovering/Resolving]
  - Uterine cancer [Unknown]
  - Decreased appetite [Not Recovered/Not Resolved]
  - Blood glucose increased [Not Recovered/Not Resolved]

NARRATIVE: CASE EVENT DATE: 20131105
